FAERS Safety Report 10654982 (Version 1)
Quarter: 2014Q4

REPORT INFORMATION
  Report Type: Spontaneous
  Country: US (occurrence: None)
  Receive Date: 20141215
  Receipt Date: 20141215
  Transmission Date: 20150529
  Serious: Yes (Disabling)
  Sender: FDA-Public Use
  Company Number: None

PATIENT
  Age: 6 Year
  Sex: Male
  Weight: 22.68 kg

DRUGS (1)
  1. INTUNIV [Suspect]
     Active Substance: GUANFACINE HYDROCHLORIDE
     Indication: ATTENTION DEFICIT/HYPERACTIVITY DISORDER
     Route: 048
     Dates: start: 20141011, end: 20141114

REACTIONS (10)
  - Sedation [None]
  - Insomnia [None]
  - Hypotension [None]
  - Drug withdrawal syndrome [None]
  - Accidental overdose [None]
  - Incorrect dose administered [None]
  - Drug dose omission [None]
  - Renal impairment [None]
  - Drug dispensing error [None]
  - Therapy cessation [None]

NARRATIVE: CASE EVENT DATE: 20141014
